FAERS Safety Report 20945260 (Version 3)
Quarter: 2022Q4

REPORT INFORMATION
  Report Type: Spontaneous
  Country: US (occurrence: US)
  Receive Date: 20220610
  Receipt Date: 20221013
  Transmission Date: 20230112
  Serious: No
  Sender: FDA-Public Use
  Company Number: US-PFIZER INC-202200814214

PATIENT
  Age: 77 Year
  Sex: Female
  Weight: 64.41 kg

DRUGS (3)
  1. XELJANZ XR [Suspect]
     Active Substance: TOFACITINIB CITRATE
     Indication: Rheumatoid arthritis
     Dosage: 11 MG (EXTENDED RELEASE 11 MG)
  2. XELJANZ XR [Suspect]
     Active Substance: TOFACITINIB CITRATE
     Dosage: 11 MG, DAILY
  3. HUMIRA [Suspect]
     Active Substance: ADALIMUMAB
     Indication: Rheumatoid arthritis
     Dosage: UNK (40MG/0.4ML)

REACTIONS (7)
  - Rash [Unknown]
  - Neuralgia [Unknown]
  - Eye disorder [Unknown]
  - Pain in extremity [Unknown]
  - Herpes zoster [Unknown]
  - Dry skin [Unknown]
  - Pruritus [Unknown]
